FAERS Safety Report 6488530-2 (Version None)
Quarter: 2009Q4

REPORT INFORMATION
  Report Type: 
  Country: None (occurrence: None)
  Receive Date: 20091123
  Receipt Date: 20091009
  Transmission Date: 20100525
  Serious: No
  Sender: FDA-Public Use
  Company Number: 8053157

PATIENT
  Age: 32 Year
  Sex: Female
  Weight: 57.6 kg

DRUGS (3)
  1. CIMZIA [Suspect]
     Indication: JUVENILE ARTHRITIS
     Dosage: 400 MG SC
     Route: 058
     Dates: start: 20090925
  2. VOLTAREN [Concomitant]
  3. TRAMADOL HCL [Concomitant]

REACTIONS (1)
  - INJECTION SITE REACTION [None]
